FAERS Safety Report 6266053-3 (Version None)
Quarter: 2009Q3

REPORT INFORMATION
  Report Type: 
  Country: None (occurrence: None)
  Receive Date: 20090709
  Receipt Date: 20090709
  Transmission Date: 20100115
  Serious: Yes (Life-Threatening)
  Sender: FDA-Public Use
  Company Number: None

PATIENT
  Age: 77 Year
  Sex: Female
  Weight: 56.6996 kg

DRUGS (3)
  1. CLINDAMYCIN HCL [Suspect]
     Indication: LOCALISED INFECTION
     Dosage: 1 CAPSULE BY MOUTH 4 TMES A DAY
     Route: 048
     Dates: start: 20090702, end: 20090703
  2. CLINDAMYCIN HCL [Suspect]
     Indication: WOUND
     Dosage: 1 CAPSULE BY MOUTH 4 TMES A DAY
     Route: 048
     Dates: start: 20090702, end: 20090703
  3. DNA [Concomitant]

REACTIONS (2)
  - DIARRHOEA [None]
  - VOMITING [None]
